FAERS Safety Report 9858474 (Version 1)
Quarter: 2014Q1

REPORT INFORMATION
  Report Type: Spontaneous
  Country: US (occurrence: None)
  Receive Date: 20140129
  Receipt Date: 20140129
  Transmission Date: 20141002
  Serious: Yes (Other)
  Sender: FDA-Public Use
  Company Number: None

PATIENT
  Age: 53 Year
  Sex: Female
  Weight: 62.14 kg

DRUGS (1)
  1. FENTANYL TRANSDERMAL SYSTEM [Suspect]
     Indication: PAIN IN EXTREMITY
     Dosage: HAVE 1/2 PATCH TO WEAR FOR 3 DAY?25MCG/HR?Q 3DAYS?APPLIED AS MEDICATED PATCH TO SKIN
     Route: 062

REACTIONS (3)
  - Somnolence [None]
  - Memory impairment [None]
  - Confusional state [None]
